FAERS Safety Report 22305384 (Version 1)
Quarter: 2023Q2

REPORT INFORMATION
  Report Type: Spontaneous
  Country: FR (occurrence: FR)
  Receive Date: 20230510
  Receipt Date: 20230510
  Transmission Date: 20230721
  Serious: Yes (Disabling)
  Sender: FDA-Public Use
  Company Number: FR-BIOGARAN-B23000739

PATIENT
  Age: 52 Year
  Sex: Male
  Weight: 94 kg

DRUGS (3)
  1. PAROXETINE [Suspect]
     Active Substance: PAROXETINE
     Indication: Product used for unknown indication
     Dosage: 1 DOSAGE FORM, QD (IN THE MORNING)
     Route: 065
  2. PAROXETINE [Suspect]
     Active Substance: PAROXETINE
     Dosage: 0.25 DOSAGE FORM, QD
     Route: 065
     Dates: end: 20230419
  3. PAROXETINE [Suspect]
     Active Substance: PAROXETINE
     Dosage: 0.5 DOSAGE FORM, QD
     Route: 065

REACTIONS (5)
  - Impaired work ability [Recovering/Resolving]
  - Wrong technique in product usage process [Unknown]
  - Intentional product misuse [Unknown]
  - Lethargy [Recovering/Resolving]
  - Somnolence [Recovering/Resolving]
